FAERS Safety Report 5726017-2 (Version None)
Quarter: 2008Q2

REPORT INFORMATION
  Report Type: 
  Country: None (occurrence: None)
  Receive Date: 20080502
  Receipt Date: 20080424
  Transmission Date: 20081010
  Serious: Yes (Hospitalization)
  Sender: FDA-Public Use
  Company Number: PHHO2007DE10523

PATIENT
  Sex: Female
  Weight: 56 kg

DRUGS (1)
  1. ZOLEDRONIC ACID [Suspect]
     Indication: BREAST CANCER
     Dosage: 4MG
     Route: 042
     Dates: start: 20070320

REACTIONS (5)
  - CHEST PAIN [None]
  - DEAFNESS [None]
  - MIDDLE EAR INFLAMMATION [None]
  - OTITIS MEDIA BACTERIAL [None]
  - TINNITUS [None]
